FAERS Safety Report 9402591 (Version 1)
Quarter: 2013Q3

REPORT INFORMATION
  Report Type: Spontaneous
  Country: JP (occurrence: JP)
  Receive Date: 20130716
  Receipt Date: 20130716
  Transmission Date: 20140515
  Serious: Yes (Hospitalization, Other)
  Sender: FDA-Public Use
  Company Number: JP-OTSUKA-JP-2012-10235

PATIENT
  Age: 62 Year
  Sex: Male

DRUGS (31)
  1. SAMSCA [Suspect]
     Indication: CARDIAC FAILURE
     Dosage: 7.5 MG MILLIGRAM(S), QAM (AT AROUND 0730)
     Route: 048
     Dates: start: 20111222, end: 20111229
  2. SAMSCA [Suspect]
     Dosage: 15 MG MILLIGRAM(S), QAM (AT AROUND 0730)
     Route: 048
     Dates: start: 20111230, end: 20120106
  3. LASIX [Concomitant]
     Dosage: 20 MG MILLIGRAM(S), DAILY DOSE
     Route: 042
     Dates: start: 20120105, end: 20120105
  4. MILRILA [Concomitant]
     Dosage: 0.25 MG/MIN/KG, DAILY DOSE
     Route: 041
  5. DOBUPUM [Concomitant]
     Dosage: 9 MG/24H, DAILY DOSE
     Route: 041
  6. ARTIST [Concomitant]
     Dosage: 1.25 MG MILLIGRAM(S), DAILY DOSE
     Route: 048
     Dates: start: 20120105
  7. GASTER D [Concomitant]
     Dosage: 10 MG MILLIGRAM(S), DAILY DOSE
     Route: 048
     Dates: start: 20120105
  8. VITAJECT [Concomitant]
     Dosage: UNK
  9. VOLVIX [Concomitant]
     Dosage: UNK
  10. ARGAMATE [Concomitant]
     Dosage: 15 G GRAM(S), DAILY DOSE
     Route: 048
     Dates: end: 20120106
  11. ALDACTONE A [Concomitant]
     Dosage: 25 MG MILLIGRAM(S), DAILY DOSE
     Route: 048
     Dates: end: 20120106
  12. ALDACTONE A [Concomitant]
     Dosage: 25 MG MILLIGRAM(S), DAILY DOSE
     Route: 048
     Dates: start: 20120110
  13. ALDACTONE A [Concomitant]
     Dosage: 6.25 MG MILLIGRAM(S), DAILY DOSE
     Route: 048
     Dates: start: 20120105
  14. ANCARON [Concomitant]
     Dosage: 200 MG MILLIGRAM(S), DAILY DOSE
     Route: 048
     Dates: end: 20120109
  15. ANCARON [Concomitant]
     Dosage: 300 MG MILLIGRAM(S), DAILY DOSE
     Route: 048
     Dates: start: 20120110
  16. COVERSYL [Concomitant]
     Dosage: 1 MG MILLIGRAM(S), DAILY DOSE
     Route: 048
  17. TAKEPRON [Concomitant]
     Dosage: 15 MG MILLIGRAM(S), DAILY DOSE
     Route: 048
     Dates: end: 20120106
  18. BAYASPIRIN [Concomitant]
     Dosage: 100 MG MILLIGRAM(S), DAILY DOSE
     Route: 048
     Dates: end: 20120106
  19. BIOFERMIN [Concomitant]
     Dosage: 6 G GRAM(S), DAILY DOSE
     Route: 048
  20. LIVALO [Concomitant]
     Dosage: 4 MG MILLIGRAM(S), DAILY DOSE
     Route: 048
     Dates: end: 20120106
  21. MAGMITT [Concomitant]
     Dosage: 990 MG MILLIGRAM(S), DAILY DOSE
     Route: 048
  22. PLAVIX [Concomitant]
     Dosage: 75 MG MILLIGRAM(S), DAILY DOSE
     Route: 048
     Dates: end: 20120106
  23. ZETIA [Concomitant]
     Dosage: 10 MG MILLIGRAM(S), DAILY DOSE
     Route: 048
     Dates: end: 20120106
  24. MAINTATE [Concomitant]
     Dosage: 0.3125 MG MILLIGRAM(S), DAILY DOSE
     Route: 048
     Dates: end: 20120106
  25. SOLDEM 6 [Concomitant]
     Dosage: UNK
  26. DOBUTREX [Concomitant]
     Dosage: UNK
  27. NOVO HEPARIN [Concomitant]
     Dosage: UNK
  28. GLUCOSE [Concomitant]
     Dosage: UNK
     Route: 041
  29. HEPARIN NA LOCK [Concomitant]
     Dosage: UNK
  30. KAKODIN [Concomitant]
     Dosage: UNK
  31. INTRALIPOS [Concomitant]
     Dosage: UNK

REACTIONS (10)
  - Blood bilirubin increased [Unknown]
  - Alanine aminotransferase increased [Unknown]
  - Aspartate aminotransferase increased [Unknown]
  - Blood alkaline phosphatase increased [Unknown]
  - Blood lactate dehydrogenase increased [Unknown]
  - Gamma-glutamyltransferase increased [Unknown]
  - Hypernatraemia [Recovering/Resolving]
  - Blood potassium increased [Unknown]
  - Platelet count decreased [Unknown]
  - Eosinophil count increased [Unknown]
